FAERS Safety Report 16595148 (Version 3)
Quarter: 2019Q3

REPORT INFORMATION
  Report Type: Spontaneous
  Country: IT (occurrence: IT)
  Receive Date: 20190718
  Receipt Date: 20190827
  Transmission Date: 20191004
  Serious: Yes (Hospitalization)
  Sender: FDA-Public Use
  Company Number: IT-VERTEX PHARMACEUTICALS-2019-006556

PATIENT
  Age: 28 Year
  Sex: Female

DRUGS (18)
  1. VORICONAZOLE. [Concomitant]
     Active Substance: VORICONAZOLE
     Dosage: 200 MG, BID
     Route: 048
  2. NACL [Concomitant]
     Active Substance: SODIUM CHLORIDE
     Dosage: 1 VIAL, QD
     Route: 048
  3. ORKAMBI [Suspect]
     Active Substance: IVACAFTOR\LUMACAFTOR
     Indication: CYSTIC FIBROSIS
     Dosage: 2 DOSAGE FORM, BID
     Route: 048
     Dates: start: 20160525
  4. OMEPRAZOLE. [Concomitant]
     Active Substance: OMEPRAZOLE
     Dosage: 20 MG, BID
     Route: 048
  5. VITAMIN D [COLECALCIFEROL] [Concomitant]
     Active Substance: CHOLECALCIFEROL
     Dosage: 1 VIAL
     Route: 048
  6. CALCIUM [Concomitant]
     Active Substance: CALCIUM
     Route: 048
  7. UDCA [Concomitant]
     Active Substance: URSODIOL
     Dosage: 300 MG, BID
     Route: 048
  8. TRANEXAMIC ACID. [Concomitant]
     Active Substance: TRANEXAMIC ACID
     Route: 048
  9. MAGNESIUM [Concomitant]
     Active Substance: MAGNESIUM
     Route: 048
  10. INSULIN [Concomitant]
     Active Substance: INSULIN NOS
     Route: 058
  11. IPRATROPIUM [Concomitant]
     Active Substance: IPRATROPIUM
     Dosage: 1 VIAL, BID
  12. MIDAZOLAM [Concomitant]
     Active Substance: MIDAZOLAM HYDROCHLORIDE
     Dosage: 3 MG
     Route: 042
  13. VITAMIN K [MENADIONE] [Concomitant]
     Active Substance: MENADIONE
     Dosage: 1 VIAL, QD
     Route: 048
  14. COLISTIN [Concomitant]
     Active Substance: COLISTIN
     Dosage: UNK, BID
     Route: 042
  15. CREON [Concomitant]
     Active Substance: PANCRELIPASE AMYLASE\PANCRELIPASE LIPASE\PANCRELIPASE PROTEASE
     Dosage: 30 CPS, QD
     Route: 048
  16. AZITHROMYCIN ANHYDROUS. [Concomitant]
     Active Substance: AZITHROMYCIN ANHYDROUS
     Dosage: 500 MG, MON, WED AND FRI
     Route: 048
  17. IRON [Concomitant]
     Active Substance: IRON
     Route: 048
  18. XYLOCAINE [Concomitant]
     Active Substance: LIDOCAINE HYDROCHLORIDE

REACTIONS (2)
  - Malnutrition [Not Recovered/Not Resolved]
  - Infective pulmonary exacerbation of cystic fibrosis [Recovered/Resolved]

NARRATIVE: CASE EVENT DATE: 201806
